FAERS Safety Report 4613282-8 (Version None)
Quarter: 2005Q1

REPORT INFORMATION
  Report Type: 
  Country: None (occurrence: None)
  Receive Date: 20050315
  Receipt Date: 20040513
  Transmission Date: 20050727
  Serious: No
  Sender: FDA-Public Use
  Company Number: 7967

PATIENT
  Sex: Female

DRUGS (4)
  1. DACARBAZINE [Suspect]
     Dosage: 632 MG INJ
  2. DOXORUBICIN HCL [Suspect]
  3. BLEOMYCIN [Suspect]
  4. VINBLASTINE SULFATE [Suspect]

REACTIONS (5)
  - CHEST DISCOMFORT [None]
  - PALLOR [None]
  - PALPITATIONS [None]
  - PARAESTHESIA ORAL [None]
  - THROAT TIGHTNESS [None]
